FAERS Safety Report 7245241-3 (Version None)
Quarter: 2011Q1

REPORT INFORMATION
  Report Type: 
  Country: None (occurrence: None)
  Receive Date: 20110126
  Receipt Date: 20101123
  Transmission Date: 20110831
  Serious: Yes (Life-Threatening, Hospitalization)
  Sender: FDA-Public Use
  Company Number: BE-BRISTOL-MYERS SQUIBB COMPANY-15172315

PATIENT
  Age: 67 Year
  Sex: Male
  Weight: 73 kg

DRUGS (4)
  1. CILENGITIDE [Suspect]
     Indication: NON-SMALL CELL LUNG CANCER
     Dosage: MOST RECENT INFUSION ON 18JUN2010. THERAPY ONGOING.
     Route: 042
     Dates: start: 20100525, end: 20100618
  2. CISPLATIN [Suspect]
     Indication: NON-SMALL CELL LUNG CANCER
     Dosage: MOST RECENT INFUSION ON 26MAY2010.DOSE REDUCED TO 60MG/M2 1 IN 3WEEK IV ONGOING
     Route: 042
     Dates: start: 20100526, end: 20100526
  3. CETUXIMAB [Suspect]
     Indication: NON-SMALL CELL LUNG CANCER
     Dosage: MOST RECENT INFUSION ON 15JUN2010. THERAPY ONGOING. STRENGTH:5MG/ML
     Route: 042
     Dates: start: 20100525, end: 20100615
  4. GEMCITABINE [Suspect]
     Indication: NON-SMALL CELL LUNG CANCER
     Dates: start: 20100525, end: 20100601

REACTIONS (1)
  - VENTRICULAR TACHYCARDIA [None]
